FAERS Safety Report 8269990-3 (Version None)
Quarter: 2012Q2

REPORT INFORMATION
  Report Type: 
  Country: None (occurrence: None)
  Receive Date: 20120410
  Receipt Date: 20120402
  Transmission Date: 20120825
  Serious: Yes (Hospitalization)
  Sender: FDA-Public Use
  Company Number: FR-JNJFOC-20120402281

PATIENT
  Age: 87 Year
  Sex: Female

DRUGS (8)
  1. BUMETANIDE [Concomitant]
     Route: 065
  2. ASPIRIN [Concomitant]
     Route: 065
  3. ESCITALOPRAM OXALATE [Concomitant]
     Indication: DEPRESSION
     Route: 065
  4. TANAKAN [Concomitant]
     Route: 065
  5. RAMIPRIL [Concomitant]
     Route: 065
  6. RISPERDAL [Suspect]
     Indication: BIPOLAR DISORDER
     Route: 048
     Dates: start: 20090101, end: 20110501
  7. LORAZEPAM [Suspect]
     Indication: ANXIETY
     Route: 048
     Dates: start: 20090101, end: 20110501
  8. LEVOTHYROXINE SODIUM [Concomitant]
     Route: 065

REACTIONS (3)
  - PULMONARY EMBOLISM [None]
  - SOMNOLENCE [None]
  - GENERAL PHYSICAL HEALTH DETERIORATION [None]
